FAERS Safety Report 24701131 (Version 2)
Quarter: 2024Q4

REPORT INFORMATION
  Report Type: Spontaneous
  Country: GB (occurrence: GB)
  Receive Date: 20241205
  Receipt Date: 20241209
  Transmission Date: 20250114
  Serious: Yes (Other)
  Sender: AMGEN
  Company Number: None

PATIENT
  Sex: Female

DRUGS (2)
  1. ADALIMUMAB [Suspect]
     Active Substance: ADALIMUMAB
     Indication: Crohn^s disease
     Dosage: UNK
     Route: 065
  2. TEDUGLUTIDE [Suspect]
     Active Substance: TEDUGLUTIDE
     Indication: Product used for unknown indication
     Dosage: UNK (ALCOHOL SWAB,NEEDLES,PRE-FILLED SYRINGE,SYRINGES)
     Route: 065

REACTIONS (5)
  - Cardiac failure [Unknown]
  - Feeling abnormal [Unknown]
  - Hypervolaemia [Unknown]
  - Dehydration [Unknown]
  - Dyspnoea [Unknown]
